FAERS Safety Report 6280517-8 (Version None)
Quarter: 2009Q3

REPORT INFORMATION
  Report Type: 
  Country: None (occurrence: None)
  Receive Date: 20090724
  Receipt Date: 20080822
  Transmission Date: 20100115
  Serious: No
  Sender: FDA-Public Use
  Company Number: A0744140A

PATIENT
  Age: 49 Year
  Sex: Female

DRUGS (6)
  1. AVANDIA [Suspect]
     Route: 048
  2. DYNACIRC CR [Suspect]
     Indication: HYPERTENSION
     Dosage: 10MG PER DAY
     Route: 048
  3. TOPROL-XL [Concomitant]
  4. NORVASC [Concomitant]
  5. GLUCOPHAGE [Concomitant]
  6. LANTUS [Concomitant]

REACTIONS (7)
  - AMNESIA [None]
  - CHEST PAIN [None]
  - DISTURBANCE IN ATTENTION [None]
  - DYSPNOEA [None]
  - FATIGUE [None]
  - HEART RATE INCREASED [None]
  - MUSCLE SPASMS [None]
